FAERS Safety Report 4369883-8 (Version None)
Quarter: 2004Q2

REPORT INFORMATION
  Report Type: 
  Country: None (occurrence: None)
  Receive Date: 20040527
  Receipt Date: 20040506
  Transmission Date: 20050107
  Serious: Yes (Death)
  Sender: FDA-Public Use
  Company Number: EWC040539177

PATIENT
  Age: 28 Year
  Sex: Male
  Weight: 72 kg

DRUGS (1)
  1. ZYPREXA [Suspect]
     Indication: SCHIZOPHRENIA
     Dosage: 10 MG/1 DAY
     Dates: start: 20010716

REACTIONS (5)
  - COMPLETED SUICIDE [None]
  - DRUG LEVEL INCREASED [None]
  - FEELING ABNORMAL [None]
  - LEFT VENTRICULAR FAILURE [None]
  - PULMONARY OEDEMA [None]
